FAERS Safety Report 18890508 (Version 4)
Quarter: 2021Q1

REPORT INFORMATION
  Report Type: Spontaneous
  Country: AU (occurrence: AU)
  Receive Date: 20210214
  Receipt Date: 20210319
  Transmission Date: 20210420
  Serious: No
  Sender: FDA-Public Use
  Company Number: AU-JNJFOC-20210202437

PATIENT
  Sex: Female

DRUGS (12)
  1. DUROGESIC [Suspect]
     Active Substance: FENTANYL
  2. DUROGESIC [Suspect]
     Active Substance: FENTANYL
  3. DUROGESIC [Suspect]
     Active Substance: FENTANYL
  4. DUROGESIC [Suspect]
     Active Substance: FENTANYL
     Indication: PAIN
     Dosage: 25.00 MCG/HR
     Route: 062
  5. DUROGESIC [Suspect]
     Active Substance: FENTANYL
  6. DUROGESIC [Suspect]
     Active Substance: FENTANYL
     Indication: PAIN
     Dosage: 25.00 MCG/HR
     Route: 062
     Dates: start: 2010
  7. DUROGESIC [Suspect]
     Active Substance: FENTANYL
  8. DUROGESIC [Suspect]
     Active Substance: FENTANYL
  9. DUROGESIC [Suspect]
     Active Substance: FENTANYL
  10. DUROGESIC [Suspect]
     Active Substance: FENTANYL
  11. DUROGESIC [Suspect]
     Active Substance: FENTANYL
  12. DUROGESIC [Suspect]
     Active Substance: FENTANYL

REACTIONS (3)
  - Product physical issue [Unknown]
  - Product adhesion issue [Unknown]
  - Incorrect dose administered [Unknown]
